FAERS Safety Report 7038022-7 (Version None)
Quarter: 2010Q4

REPORT INFORMATION
  Report Type: 
  Country: None (occurrence: None)
  Receive Date: 20101011
  Receipt Date: 20101002
  Transmission Date: 20110411
  Serious: Yes (Other)
  Sender: FDA-Public Use
  Company Number: JP-ASTRAZENECA-2010SE46808

PATIENT
  Age: 50 Year
  Sex: Female

DRUGS (2)
  1. ZOLADEX [Suspect]
     Indication: BREAST CANCER
     Route: 058
     Dates: start: 20100917
  2. NOLVADEX [Suspect]
     Indication: BREAST CANCER
     Route: 048
     Dates: start: 20100917

REACTIONS (1)
  - PEMPHIGOID [None]
